FAERS Safety Report 9473556 (Version 1)
Quarter: 2013Q3

REPORT INFORMATION
  Report Type: Spontaneous
  Country: US (occurrence: US)
  Receive Date: 20130823
  Receipt Date: 20130823
  Transmission Date: 20140515
  Serious: Yes (Hospitalization)
  Sender: FDA-Public Use
  Company Number: US-BAYER-2013-101757

PATIENT
  Age: 32 Year
  Sex: Female

DRUGS (7)
  1. YAZ [Suspect]
  2. CELEXA [Concomitant]
     Dosage: UNK
     Dates: start: 20070102
  3. MINERALS NOS [Concomitant]
     Dosage: UNK
     Dates: start: 20070102
  4. VALIUM [Concomitant]
     Dosage: UNK
     Dates: start: 20070102
  5. CITALOPRAM HYDROBROMIDE [Concomitant]
     Dosage: UNK
     Dates: start: 20061029
  6. AZITHROMYCIN [Concomitant]
     Dosage: UNK
     Dates: start: 20061207
  7. PROMETHAZINE W/CODEINE [Concomitant]
     Dosage: UNK
     Dates: start: 20061207

REACTIONS (2)
  - Cerebrovascular accident [None]
  - Cerebellar infarction [None]
